FAERS Safety Report 9538995 (Version 1)
Quarter: 2013Q3

REPORT INFORMATION
  Report Type: Report from Study
  Country: US (occurrence: US)
  Receive Date: 20130920
  Receipt Date: 20130920
  Transmission Date: 20140515
  Serious: No
  Sender: FDA-Public Use
  Company Number: PHEH2013US019492

PATIENT
  Age: 56 Year
  Sex: Female

DRUGS (5)
  1. TASIGNA [Suspect]
     Indication: CHRONIC MYELOID LEUKAEMIA
     Dosage: 150 MG, UNK
     Route: 048
     Dates: start: 20130625
  2. PHENERGAN                          /00404701/ [Concomitant]
  3. JANUMET [Concomitant]
  4. KLONOPIN [Concomitant]
  5. ZOLOFT [Concomitant]

REACTIONS (1)
  - Food interaction [Unknown]
